FAERS Safety Report 8262026-X (Version None)
Quarter: 2012Q2

REPORT INFORMATION
  Report Type: 
  Country: None (occurrence: None)
  Receive Date: 20120405
  Receipt Date: 20120328
  Transmission Date: 20120825
  Serious: Yes (Hospitalization, Other)
  Sender: FDA-Public Use
  Company Number: US-ASTRAZENECA-2011SE01338

PATIENT
  Age: 57 Year
  Sex: Male

DRUGS (11)
  1. LISINOPRIL [Suspect]
     Route: 048
  2. PLAVIX [Concomitant]
     Route: 048
  3. ZOCOR [Concomitant]
     Route: 048
  4. NITROGLYCERIN [Concomitant]
     Indication: ANGINA PECTORIS
     Route: 060
  5. HUMULIN N [Concomitant]
     Dosage: 100 UNIT/ML, 60 UNITS AM AND 44 UNITS PM
     Route: 058
  6. FISH OIL [Concomitant]
     Dosage: 500-300-200 MG TWICE A DAY
     Route: 048
  7. METFORMIN HCL [Concomitant]
     Route: 048
  8. GLIPIZIDE [Concomitant]
     Route: 048
  9. METFORMIN HCL [Concomitant]
     Route: 048
  10. ASPIRIN [Concomitant]
     Route: 048
  11. NEXIUM [Suspect]
     Route: 048

REACTIONS (8)
  - RENAL FAILURE ACUTE [None]
  - MYOCARDIAL INFARCTION [None]
  - GASTROOESOPHAGEAL REFLUX DISEASE [None]
  - INTENTIONAL DRUG MISUSE [None]
  - FEELING ABNORMAL [None]
  - HYPERTENSION [None]
  - DIARRHOEA [None]
  - HYPERLIPIDAEMIA [None]
